FAERS Safety Report 6706396-X (Version None)
Quarter: 2010Q2

REPORT INFORMATION
  Report Type: 
  Country: None (occurrence: None)
  Receive Date: 20100503
  Receipt Date: 20100420
  Transmission Date: 20101027
  Serious: Yes (Hospitalization)
  Sender: FDA-Public Use
  Company Number: JP-AMGEN-US409394

PATIENT
  Sex: Male
  Weight: 61 kg

DRUGS (8)
  1. ENBREL [Suspect]
     Indication: RHEUMATOID ARTHRITIS
     Dosage: INJECTION; 25 MG 2 X PER 1 WEEK
     Route: 058
     Dates: start: 20070619
  2. PREDONINE [Suspect]
     Indication: RHEUMATOID ARTHRITIS
     Dosage: NOT PROVIDED
     Route: 048
  3. HYPEN [Concomitant]
     Dosage: NOT PROVIDED
     Route: 048
  4. OLMESARTAN MEDOXOMIL [Concomitant]
     Dosage: NOT PROVIDED
     Route: 048
  5. OMEPRAL [Concomitant]
     Indication: GASTRIC ULCER
     Dosage: NOT PROVIDED
     Route: 048
  6. MUCOSTA [Concomitant]
     Indication: GASTRIC ULCER
     Dosage: NOT PROVIDED
     Route: 048
  7. BONALON [Concomitant]
     Indication: OSTEOPOROSIS
     Dosage: NOT PROVIDED
     Route: 048
  8. PANALDINE [Concomitant]
     Indication: ARTERIOSCLEROSIS OBLITERANS
     Dosage: NOT PROVIDED
     Route: 048

REACTIONS (3)
  - JOINT ARTHROPLASTY [None]
  - POSTOPERATIVE WOUND INFECTION [None]
  - STAPHYLOCOCCAL INFECTION [None]
